FAERS Safety Report 8477918-6 (Version None)
Quarter: 2012Q2

REPORT INFORMATION
  Report Type: 
  Country: None (occurrence: None)
  Receive Date: 20120629
  Receipt Date: 20120625
  Transmission Date: 20120825
  Serious: Yes (Other)
  Sender: FDA-Public Use
  Company Number: US-PFIZER INC-2012140094

PATIENT
  Sex: Male
  Weight: 75 kg

DRUGS (5)
  1. GABAPENTIN [Suspect]
     Dosage: 300 MG, 4X/DAY
     Dates: start: 20110101, end: 20110101
  2. KLONOPIN [Concomitant]
     Indication: ANXIETY
  3. SUBOXONE [Concomitant]
     Indication: DRUG ABUSE
     Dosage: 8/2 MG, DAILY
  4. KLONOPIN [Concomitant]
     Indication: PANIC DISORDER
     Dosage: 2 MG, 2X/DAY
  5. KLONOPIN [Concomitant]
     Indication: CONVULSION

REACTIONS (13)
  - ASTHENIA [None]
  - MENTAL DISORDER [None]
  - BALANCE DISORDER [None]
  - DECREASED INTEREST [None]
  - SELF ESTEEM DECREASED [None]
  - PARANOIA [None]
  - FATIGUE [None]
  - MYALGIA [None]
  - HEADACHE [None]
  - MUSCULOSKELETAL STIFFNESS [None]
  - PAIN [None]
  - NERVOUSNESS [None]
  - DISTURBANCE IN ATTENTION [None]
